FAERS Safety Report 8003093-8 (Version None)
Quarter: 2011Q4

REPORT INFORMATION
  Report Type: 
  Country: None (occurrence: None)
  Receive Date: 20111222
  Receipt Date: 20111213
  Transmission Date: 20120403
  Serious: Yes (Other)
  Sender: FDA-Public Use
  Company Number: PHHY2011DE108795

PATIENT
  Sex: Female

DRUGS (1)
  1. GLEEVEC [Suspect]
     Indication: GASTROINTESTINAL STROMAL TUMOUR
     Dosage: 400 MG, DAILY
     Route: 048
     Dates: start: 20110801

REACTIONS (4)
  - RENAL CELL CARCINOMA [None]
  - NEOPLASM PROGRESSION [None]
  - RENAL HAEMORRHAGE [None]
  - NEOPLASM MALIGNANT [None]
